FAERS Safety Report 17662987 (Version 1)
Quarter: 2020Q2

REPORT INFORMATION
  Report Type: Spontaneous
  Country: US (occurrence: US)
  Receive Date: 20200413
  Receipt Date: 20200413
  Transmission Date: 20200713
  Serious: Yes (Hospitalization)
  Sender: FDA-Public Use
  Company Number: US-ACTELION-A-NJ2020-204046

PATIENT
  Sex: Female

DRUGS (20)
  1. CITALOPRAM HYDROBROMIDE. [Concomitant]
     Active Substance: CITALOPRAM HYDROBROMIDE
  2. METFORMIN HYDROCHLORIDE. [Concomitant]
     Active Substance: METFORMIN HYDROCHLORIDE
  3. BROVANA [Concomitant]
     Active Substance: ARFORMOTEROL TARTRATE
  4. HYDROCODONE BITARTRATE AND ACETAMINOPHEN [Concomitant]
     Active Substance: ACETAMINOPHEN\HYDROCODONE BITARTRATE
  5. ANORO ELLIPTA [Concomitant]
     Active Substance: UMECLIDINIUM BROMIDE\VILANTEROL TRIFENATATE
  6. ROPINIROLE. [Concomitant]
     Active Substance: ROPINIROLE
  7. IPRATROPIUM BROMIDE. [Concomitant]
     Active Substance: IPRATROPIUM BROMIDE
  8. LANTUS [Concomitant]
     Active Substance: INSULIN GLARGINE
  9. LYRICA [Concomitant]
     Active Substance: PREGABALIN
  10. SPIRONOLACTONE. [Concomitant]
     Active Substance: SPIRONOLACTONE
  11. SYNTHROID [Concomitant]
     Active Substance: LEVOTHYROXINE SODIUM
  12. OPSUMIT [Suspect]
     Active Substance: MACITENTAN
     Indication: PULMONARY ARTERIAL HYPERTENSION
     Dosage: 10 MG
     Route: 048
  13. LASIX [Concomitant]
     Active Substance: FUROSEMIDE
  14. NITROGLYCERIN. [Concomitant]
     Active Substance: NITROGLYCERIN
  15. ASPIRIN. [Concomitant]
     Active Substance: ASPIRIN
  16. ATENOLOL. [Concomitant]
     Active Substance: ATENOLOL
  17. LANSOPRAZOLE. [Concomitant]
     Active Substance: LANSOPRAZOLE
  18. LORAZEPAM. [Concomitant]
     Active Substance: LORAZEPAM
  19. NOVOLOG [Concomitant]
     Active Substance: INSULIN ASPART
  20. DALIRESP [Concomitant]
     Active Substance: ROFLUMILAST

REACTIONS (13)
  - Amnesia [Unknown]
  - Asthenia [Unknown]
  - Muscle spasms [Unknown]
  - Chest discomfort [Unknown]
  - Anaemia [Unknown]
  - Swelling [Unknown]
  - Dyspnoea exertional [Unknown]
  - Insomnia [Unknown]
  - Tachycardia [Unknown]
  - Dysphonia [Unknown]
  - Contusion [Unknown]
  - Weight increased [Unknown]
  - Hospitalisation [Not Recovered/Not Resolved]
